FAERS Safety Report 24741052 (Version 1)
Quarter: 2024Q4

REPORT INFORMATION
  Report Type: Spontaneous
  Country: US (occurrence: US)
  Receive Date: 20241217
  Receipt Date: 20241217
  Transmission Date: 20250115
  Serious: Yes (Other)
  Sender: AUROBINDO
  Company Number: US-AUROBINDO-AUR-APL-2024-048812

PATIENT
  Age: 17 Year
  Sex: Male

DRUGS (8)
  1. DEXMEDETOMIDINE [Suspect]
     Active Substance: DEXMEDETOMIDINE
     Indication: Paroxysmal autonomic instability with dystonia
     Dosage: 0.5 MICROGRAM/KILOGRAM/HOUR WITH AN OPTION FOR BOLUS DOSING OF 12.5 ?G EVERY 60 MINUTES
     Route: 042
  2. DEXMEDETOMIDINE [Suspect]
     Active Substance: DEXMEDETOMIDINE
     Indication: Pain
  3. CARBIDOPA\LEVODOPA [Suspect]
     Active Substance: CARBIDOPA\LEVODOPA
     Indication: Dystonia
     Dosage: UNK
     Route: 065
  4. CLONIDINE [Concomitant]
     Active Substance: CLONIDINE
     Indication: Dystonia
     Dosage: 0.6 MILLIGRAM, ONCE A DAY (DOSE WAS INCREASED)
     Route: 062
  5. CLONIDINE [Concomitant]
     Active Substance: CLONIDINE
     Dosage: 100 MICROGRAM, FOUR TIMES/DAY BY JEJUNOSTOMY TUBE
     Route: 062
  6. RIFAXIMIN [Concomitant]
     Active Substance: RIFAXIMIN
     Indication: Intestinal haemorrhage
     Dosage: 200 MILLIGRAM, 3 TIMES A DAY BY JEJUNOSTOMY TUBE
     Route: 048
  7. OXYCODONE [Concomitant]
     Active Substance: OXYCODONE
     Indication: Product used for unknown indication
     Dosage: UNK
     Route: 065
  8. RISPERIDONE [Concomitant]
     Active Substance: RISPERIDONE
     Indication: Product used for unknown indication
     Dosage: UNK
     Route: 065

REACTIONS (2)
  - Drug ineffective [Unknown]
  - Off label use [Unknown]
